FAERS Safety Report 11335678 (Version 1)
Quarter: 2015Q3

REPORT INFORMATION
  Report Type: Spontaneous
  Country: US (occurrence: US)
  Receive Date: 20150804
  Receipt Date: 20150804
  Transmission Date: 20151125
  Serious: Yes (Hospitalization)
  Sender: FDA-Public Use
  Company Number: US-PFIZER INC-2015248658

PATIENT
  Age: 61 Year
  Sex: Female

DRUGS (1)
  1. XALKORI [Suspect]
     Active Substance: CRIZOTINIB
     Indication: LUNG NEOPLASM MALIGNANT
     Dosage: 250 MG, 2X/DAY
     Dates: start: 20140102

REACTIONS (7)
  - Cognitive disorder [Unknown]
  - Memory impairment [Unknown]
  - Visual impairment [Unknown]
  - Weight decreased [Unknown]
  - Dehydration [Unknown]
  - Constipation [Unknown]
  - Neuropathy peripheral [Unknown]
